FAERS Safety Report 18404431 (Version 1)
Quarter: 2020Q4

REPORT INFORMATION
  Report Type: Report from Study
  Country: CN (occurrence: CN)
  Receive Date: 20201020
  Receipt Date: 20201020
  Transmission Date: 20210114
  Serious: Yes (Death)
  Sender: FDA-Public Use
  Company Number: CN-B.I. PHARMACEUTICALS,INC./RIDGEFIELD-2020-BI-055066

PATIENT
  Age: 42 Year

DRUGS (2)
  1. OFEV [Suspect]
     Active Substance: NINTEDANIB
     Indication: MYOPATHY
  2. OFEV [Suspect]
     Active Substance: NINTEDANIB
     Indication: INTERSTITIAL LUNG DISEASE

REACTIONS (5)
  - Off label use [Unknown]
  - Abdominal pain [Unknown]
  - Interstitial lung disease [Fatal]
  - Diarrhoea [Unknown]
  - Fatigue [Unknown]
